FAERS Safety Report 17868732 (Version 1)
Quarter: 2020Q2

REPORT INFORMATION
  Report Type: Spontaneous
  Country: CA (occurrence: CA)
  Receive Date: 20200607
  Receipt Date: 20200607
  Transmission Date: 20200714
  Serious: Yes (Other)
  Sender: FDA-Public Use
  Company Number: CA-ROCHE-2613239

PATIENT
  Age: 60 Year
  Sex: Female

DRUGS (5)
  1. BEVACIZUMAB. [Suspect]
     Active Substance: BEVACIZUMAB
     Indication: CORNEAL DEPOSITS
     Route: 065
  2. RESTASIS [Concomitant]
     Active Substance: CYCLOSPORINE
     Indication: OPHTHALMIC HERPES SIMPLEX
  3. BEVACIZUMAB. [Suspect]
     Active Substance: BEVACIZUMAB
     Indication: CORNEAL NEOVASCULARISATION
     Route: 057
  4. RESTASIS [Concomitant]
     Active Substance: CYCLOSPORINE
     Indication: DRY EYE
  5. RESTASIS [Concomitant]
     Active Substance: CYCLOSPORINE
     Indication: PROPHYLAXIS

REACTIONS (3)
  - Product use in unapproved indication [Unknown]
  - Ophthalmic herpes simplex [Unknown]
  - Off label use [Unknown]
